FAERS Safety Report 8603602-1 (Version None)
Quarter: 2012Q3

REPORT INFORMATION
  Report Type: 
  Country: None (occurrence: None)
  Receive Date: 20120817
  Receipt Date: 20120806
  Transmission Date: 20120928
  Serious: Yes (Other)
  Sender: FDA-Public Use
  Company Number: AU-ROCHE-1099890

PATIENT
  Sex: Female

DRUGS (2)
  1. LUCENTIS [Suspect]
     Route: 050
     Dates: start: 20120709
  2. LUCENTIS [Suspect]
     Indication: AGE-RELATED MACULAR DEGENERATION
     Dosage: LAST INJECTION WAS ON 09/JUL/2012
     Route: 050
     Dates: start: 20120401

REACTIONS (3)
  - SKIN NEOPLASM EXCISION [None]
  - MALAISE [None]
  - HAEMORRHAGE [None]
